FAERS Safety Report 10084873 (Version 4)
Quarter: 2014Q2

REPORT INFORMATION
  Report Type: Spontaneous
  Country: US (occurrence: US)
  Receive Date: 20140417
  Receipt Date: 20140512
  Transmission Date: 20141212
  Serious: Yes (Death, Hospitalization, Other)
  Sender: FDA-Public Use
  Company Number: US-BAXTER-2014BAX017886

PATIENT
  Sex: Female

DRUGS (1)
  1. DIANEAL LOW CALCIUM [Suspect]
     Indication: PERITONEAL DIALYSIS
     Route: 033

REACTIONS (6)
  - Respiratory failure [Fatal]
  - Cardiac failure [Unknown]
  - Syncope [Recovered/Resolved]
  - Mental status changes [Recovered/Resolved]
  - Atrial fibrillation [Recovered/Resolved]
  - Nephropathy toxic [Recovered/Resolved]
